FAERS Safety Report 4504263-3 (Version None)
Quarter: 2004Q4

REPORT INFORMATION
  Report Type: 
  Country: None (occurrence: None)
  Receive Date: 20041112
  Receipt Date: 20041101
  Transmission Date: 20050328
  Serious: Yes (Other)
  Sender: FDA-Public Use
  Company Number: 2004-306

PATIENT
  Sex: Male

DRUGS (1)
  1. DAPSONE [Suspect]

REACTIONS (2)
  - DRUG EFFECT DECREASED [None]
  - INADEQUATE DIET [None]
